FAERS Safety Report 14508606 (Version 5)
Quarter: 2018Q3

REPORT INFORMATION
  Report Type: Report from Study
  Country: None (occurrence: US)
  Receive Date: 20180209
  Receipt Date: 20180830
  Transmission Date: 20181010
  Serious: Yes (Other)
  Sender: FDA-Public Use
  Company Number: US-ABBVIE-18K-163-2231094-00

PATIENT
  Age: 60 Year
  Sex: Male
  Weight: 88.53 kg

DRUGS (7)
  1. TRAMADOL. [Concomitant]
     Active Substance: TRAMADOL
     Indication: PRODUCT USED FOR UNKNOWN INDICATION
  2. BACLOFEN. [Concomitant]
     Active Substance: BACLOFEN
     Indication: PRODUCT USED FOR UNKNOWN INDICATION
  3. CYMBALTA [Concomitant]
     Active Substance: DULOXETINE HYDROCHLORIDE
     Indication: NERVOUS SYSTEM DISORDER
  4. GABAPENTIN. [Concomitant]
     Active Substance: GABAPENTIN
     Indication: PRODUCT USED FOR UNKNOWN INDICATION
  5. HUMIRA [Suspect]
     Active Substance: ADALIMUMAB
     Indication: PSORIASIS
     Route: 058
     Dates: start: 20170922, end: 20180110
  6. CYMBALTA [Concomitant]
     Active Substance: DULOXETINE HYDROCHLORIDE
     Indication: SPINAL DISORDER
  7. HUMIRA [Suspect]
     Active Substance: ADALIMUMAB
     Route: 058
     Dates: start: 20180226

REACTIONS (11)
  - Tendon laxity [Recovered/Resolved]
  - Injection site induration [Unknown]
  - Back disorder [Unknown]
  - Spinal disorder [Unknown]
  - Shoulder operation [Unknown]
  - Psoriasis [Unknown]
  - Rotator cuff syndrome [Recovered/Resolved]
  - Dental implantation [Unknown]
  - Tendon rupture [Recovered/Resolved]
  - Nerve injury [Unknown]
  - Injection site rash [Unknown]

NARRATIVE: CASE EVENT DATE: 2017
